FAERS Safety Report 19470098 (Version 1)
Quarter: 2021Q2

REPORT INFORMATION
  Report Type: Report from Study
  Country: US (occurrence: US)
  Receive Date: 20210628
  Receipt Date: 20210628
  Transmission Date: 20210717
  Serious: Yes (Other)
  Sender: FDA-Public Use
  Company Number: US-INCYTE CORPORATION-2021IN004322

PATIENT

DRUGS (4)
  1. DIOVAN [Concomitant]
     Active Substance: VALSARTAN
     Indication: PRODUCT USED FOR UNKNOWN INDICATION
     Dosage: ON A REGULAR BASIS
     Route: 065
  2. TOPROL XL [Concomitant]
     Active Substance: METOPROLOL SUCCINATE
     Indication: PRODUCT USED FOR UNKNOWN INDICATION
     Dosage: ON A REGULAR BASIS
     Route: 065
  3. JAKAFI [Suspect]
     Active Substance: RUXOLITINIB
     Indication: MYELOFIBROSIS
     Dosage: 5 MILLIGRAM, BID
     Route: 048
     Dates: start: 202101
  4. JAKAFI [Suspect]
     Active Substance: RUXOLITINIB
     Indication: POLYCYTHAEMIA VERA
     Dosage: 5 MILLIGRAM, BID
     Route: 048
     Dates: start: 20210429

REACTIONS (18)
  - Pneumonia [Unknown]
  - Diverticulitis intestinal haemorrhagic [Unknown]
  - Nail disorder [Unknown]
  - Back pain [Unknown]
  - Constipation [Not Recovered/Not Resolved]
  - Gastrointestinal haemorrhage [Unknown]
  - Eructation [Unknown]
  - Pollakiuria [Unknown]
  - Nail growth abnormal [Unknown]
  - Abdominal distension [Unknown]
  - Flatulence [Unknown]
  - Micturition urgency [Unknown]
  - White blood cell count decreased [Unknown]
  - Splenomegaly [Unknown]
  - Abdominal pain [Unknown]
  - Therapeutic response unexpected [Unknown]
  - Sepsis [Unknown]
  - Pulmonary mass [Unknown]

NARRATIVE: CASE EVENT DATE: 2021
